FAERS Safety Report 24922884 (Version 3)
Quarter: 2025Q3

REPORT INFORMATION
  Report Type: Spontaneous
  Country: CA (occurrence: CA)
  Receive Date: 20250204
  Receipt Date: 20250808
  Transmission Date: 20251020
  Serious: Yes (Death, Other)
  Sender: CIPHER
  Company Number: CA-CIPHER-2025-CA-000036

PATIENT
  Sex: Female

DRUGS (72)
  1. TRAMADOL HYDROCHLORIDE [Suspect]
     Active Substance: TRAMADOL HYDROCHLORIDE
     Indication: Product used for unknown indication
  2. CALCIUM CARBONATE [Suspect]
     Active Substance: CALCIUM CARBONATE
     Indication: Product used for unknown indication
     Route: 016
  3. CALCIUM CITRATE [Suspect]
     Active Substance: CALCIUM CITRATE
     Indication: Product used for unknown indication
  4. CALCIUM GLUBIONATE [Suspect]
     Active Substance: CALCIUM GLUBIONATE
     Indication: Product used for unknown indication
  5. CELECOXIB [Suspect]
     Active Substance: CELECOXIB
     Indication: Product used for unknown indication
     Route: 058
  6. CERTOLIZUMAB PEGOL [Suspect]
     Active Substance: CERTOLIZUMAB PEGOL
     Indication: Product used for unknown indication
     Route: 058
  7. CHLORHEXIDINE [Suspect]
     Active Substance: CHLORHEXIDINE
     Indication: Product used for unknown indication
     Route: 002
  8. CIMZIA [Suspect]
     Active Substance: CERTOLIZUMAB PEGOL
     Indication: Product used for unknown indication
  9. CLONIDINE HYDROCHLORIDE [Suspect]
     Active Substance: CLONIDINE HYDROCHLORIDE
     Indication: Product used for unknown indication
  10. CLOTRIMAZOLE\HYDROCORTISONE [Suspect]
     Active Substance: CLOTRIMAZOLE\HYDROCORTISONE
     Indication: Product used for unknown indication
     Route: 048
  11. HYDROCORTISONE ACETATE [Suspect]
     Active Substance: HYDROCORTISONE ACETATE
     Indication: Product used for unknown indication
     Route: 058
  12. ACETAMINOPHEN [Suspect]
     Active Substance: ACETAMINOPHEN
     Indication: Product used for unknown indication
  13. CORTISONE ACETATE [Suspect]
     Active Substance: CORTISONE ACETATE
     Indication: Product used for unknown indication
  14. DESOXIMETASONE [Suspect]
     Active Substance: DESOXIMETASONE
     Indication: Product used for unknown indication
     Route: 003
  15. DICLOFENAC [Suspect]
     Active Substance: DICLOFENAC
     Indication: Product used for unknown indication
  16. DICLOFENAC DIETHYLAMINE [Suspect]
     Active Substance: DICLOFENAC DIETHYLAMINE
     Indication: Product used for unknown indication
  17. DICLOFENAC POTASSIUM [Suspect]
     Active Substance: DICLOFENAC POTASSIUM
     Indication: Product used for unknown indication
  18. DICLOFENAC SODIUM [Suspect]
     Active Substance: DICLOFENAC SODIUM
  19. DILTIAZEM HYDROCHLORIDE [Suspect]
     Active Substance: DILTIAZEM HYDROCHLORIDE
     Indication: Product used for unknown indication
     Route: 042
  20. DOXYCYCLINE HYCLATE [Suspect]
     Active Substance: DOXYCYCLINE HYCLATE
     Indication: Product used for unknown indication
  21. SULFISOMIDINE [Suspect]
     Active Substance: SULFISOMIDINE
     Indication: Product used for unknown indication
  22. ENBREL [Suspect]
     Active Substance: ETANERCEPT
     Indication: Product used for unknown indication
     Route: 058
  23. ADALIMUMAB [Suspect]
     Active Substance: ADALIMUMAB
     Indication: Product used for unknown indication
     Route: 058
  24. ENTYVIO [Suspect]
     Active Substance: VEDOLIZUMAB
     Indication: Product used for unknown indication
  25. ERELZI [Suspect]
     Active Substance: ETANERCEPT-SZZS
     Indication: Product used for unknown indication
     Route: 058
  26. FOLIC ACID [Suspect]
     Active Substance: FOLIC ACID
     Indication: Product used for unknown indication
     Route: 048
  27. FRAMYCETIN SULFATE [Suspect]
     Active Substance: FRAMYCETIN SULFATE
     Indication: Product used for unknown indication
  28. GOLIMUMAB [Suspect]
     Active Substance: GOLIMUMAB
     Indication: Product used for unknown indication
  29. GRAMICIDIN [Suspect]
     Active Substance: GRAMICIDIN
     Indication: Product used for unknown indication
  30. HUMIRA [Suspect]
     Active Substance: ADALIMUMAB
     Indication: Product used for unknown indication
     Route: 058
  31. HYDROCORTISONE SODIUM SUCCINATE [Suspect]
     Active Substance: HYDROCORTISONE SODIUM SUCCINATE
     Indication: Product used for unknown indication
     Route: 048
  32. HYDROXYCHLOROQUINE [Suspect]
     Active Substance: HYDROXYCHLOROQUINE
     Indication: Product used for unknown indication
     Route: 048
  33. HYDROXYCHLOROQUINE SULFATE [Suspect]
     Active Substance: HYDROXYCHLOROQUINE SULFATE
     Indication: Product used for unknown indication
     Route: 049
  34. ALENDRONATE SODIUM [Suspect]
     Active Substance: ALENDRONATE SODIUM
     Indication: Product used for unknown indication
  35. INFLIXIMAB [Suspect]
     Active Substance: INFLIXIMAB
     Indication: Product used for unknown indication
  36. ISOPROPYL ALCOHOL [Suspect]
     Active Substance: ISOPROPYL ALCOHOL
     Indication: Product used for unknown indication
  37. LYRICA [Suspect]
     Active Substance: PREGABALIN
     Indication: Product used for unknown indication
  38. MESALAMINE [Suspect]
     Active Substance: MESALAMINE
     Indication: Product used for unknown indication
  39. METHOTREXATE [Suspect]
     Active Substance: METHOTREXATE
     Indication: Product used for unknown indication
     Route: 048
  40. METHYLPREDNISOLONE SODIUM SUCCINATE [Suspect]
     Active Substance: METHYLPREDNISOLONE SODIUM SUCCINATE
     Indication: Product used for unknown indication
     Route: 048
  41. MORPHINE SULFATE [Suspect]
     Active Substance: MORPHINE SULFATE
     Indication: Product used for unknown indication
  42. MYCOPHENOLATE MOFETIL [Suspect]
     Active Substance: MYCOPHENOLATE MOFETIL
     Indication: Product used for unknown indication
  43. NAPROXEN SODIUM [Suspect]
     Active Substance: NAPROXEN SODIUM
     Indication: Product used for unknown indication
  44. NITROFURAZONE [Suspect]
     Active Substance: NITROFURAZONE
     Indication: Product used for unknown indication
     Route: 048
  45. PANTOPRAZOLE SODIUM ANHYDROUS [Suspect]
     Active Substance: PANTOPRAZOLE SODIUM ANHYDROUS
     Indication: Product used for unknown indication
     Route: 016
  46. ORENCIA [Suspect]
     Active Substance: ABATACEPT
     Indication: Product used for unknown indication
     Route: 042
  47. OTEZLA [Suspect]
     Active Substance: APREMILAST
     Indication: Product used for unknown indication
  48. OXYCODONE TEREPHTHALATE [Suspect]
     Active Substance: OXYCODONE TEREPHTHALATE
     Indication: Product used for unknown indication
  49. PARA-AMINOSALICYLIC ACID [Suspect]
     Active Substance: AMINOSALICYLIC ACID
     Indication: Product used for unknown indication
  50. PHTHALYLSULFATHIAZOLE [Suspect]
     Active Substance: PHTHALYLSULFATHIAZOLE
     Indication: Product used for unknown indication
     Route: 048
  51. PREDNISONE [Suspect]
     Active Substance: PREDNISONE
     Indication: Product used for unknown indication
     Route: 048
  52. PSEUDOEPHEDRINE [Suspect]
     Active Substance: PSEUDOEPHEDRINE
     Indication: Product used for unknown indication
  53. QUETIAPINE FUMARATE [Suspect]
     Active Substance: QUETIAPINE FUMARATE
     Indication: Product used for unknown indication
  54. SALICYLIC ACID [Suspect]
     Active Substance: SALICYLIC ACID
     Indication: Product used for unknown indication
  55. SODIUM FLUORIDE [Suspect]
     Active Substance: SODIUM FLUORIDE
     Indication: Product used for unknown indication
  56. APREMILAST [Suspect]
     Active Substance: APREMILAST
     Indication: Product used for unknown indication
  57. SULFAMETHOXAZOLE\TRIMETHOPRIM [Suspect]
     Active Substance: SULFAMETHOXAZOLE\TRIMETHOPRIM
     Indication: Product used for unknown indication
     Route: 067
  58. SULFASALAZINE [Suspect]
     Active Substance: SULFASALAZINE
     Indication: Product used for unknown indication
     Route: 058
  59. THYMOL [Suspect]
     Active Substance: THYMOL
     Indication: Product used for unknown indication
     Route: 048
  60. TOCILIZUMAB [Suspect]
     Active Substance: TOCILIZUMAB
     Indication: Product used for unknown indication
     Route: 058
  61. TOFACITINIB CITRATE [Suspect]
     Active Substance: TOFACITINIB CITRATE
     Indication: Product used for unknown indication
  62. TRIAMCINOLONE ACETONIDE [Suspect]
     Active Substance: TRIAMCINOLONE ACETONIDE
     Indication: Product used for unknown indication
     Route: 014
  63. TRICLOSAN [Suspect]
     Active Substance: TRICLOSAN
     Indication: Product used for unknown indication
  64. TYROTHRICIN [Suspect]
     Active Substance: TYROTHRICIN
     Indication: Product used for unknown indication
     Route: 048
  65. USTEKINUMAB [Suspect]
     Active Substance: USTEKINUMAB
     Indication: Product used for unknown indication
     Route: 042
  66. VITAMIN D3 [Suspect]
     Active Substance: CHOLECALCIFEROL
     Indication: Product used for unknown indication
  67. AZATHIOPRINE SODIUM [Suspect]
     Active Substance: AZATHIOPRINE SODIUM
     Indication: Product used for unknown indication
  68. XELJANZ [Suspect]
     Active Substance: TOFACITINIB CITRATE
     Route: 048
  69. PANTOPRAZOLE SODIUM [Suspect]
     Active Substance: PANTOPRAZOLE SODIUM
     Indication: Product used for unknown indication
     Route: 016
  70. UNSPECIFIED INGREDIENT [Suspect]
     Active Substance: UNSPECIFIED INGREDIENT
     Indication: Product used for unknown indication
  71. BENZOYLPAS CALCIUM ANHYDROUS [Suspect]
     Active Substance: BENZOYLPAS CALCIUM ANHYDROUS
     Indication: Product used for unknown indication
  72. CALCIUM [Suspect]
     Active Substance: CALCIUM
     Indication: Product used for unknown indication

REACTIONS (39)
  - Hand deformity [Fatal]
  - Headache [Fatal]
  - Helicobacter infection [Fatal]
  - Hepatic cirrhosis [Fatal]
  - Hepatic enzyme increased [Fatal]
  - Abdominal discomfort [Fatal]
  - Adjustment disorder with depressed mood [Fatal]
  - Alopecia [Fatal]
  - Blister [Fatal]
  - Autoimmune disorder [Fatal]
  - Fibromyalgia [Fatal]
  - Asthma [Fatal]
  - Arthropathy [Fatal]
  - Arthritis [Fatal]
  - Arthralgia [Fatal]
  - Anxiety [Fatal]
  - Amnesia [Fatal]
  - Anti-cyclic citrullinated peptide antibody [Fatal]
  - Anti-cyclic citrullinated peptide antibody positive [Fatal]
  - Delirium [Fatal]
  - Deep vein thrombosis postoperative [Fatal]
  - Folliculitis [Fatal]
  - Decreased appetite [Fatal]
  - Crohn^s disease [Fatal]
  - Contusion [Fatal]
  - Confusional state [Fatal]
  - Condition aggravated [Fatal]
  - Chest pain [Fatal]
  - C-reactive protein increased [Fatal]
  - Bronchitis [Fatal]
  - Breast cancer stage III [Fatal]
  - Bone erosion [Fatal]
  - Foot deformity [Fatal]
  - Blood cholesterol increased [Fatal]
  - Gait disturbance [Fatal]
  - Gait inability [Fatal]
  - General physical health deterioration [Fatal]
  - Glossodynia [Fatal]
  - Grip strength decreased [Fatal]
